FAERS Safety Report 13847190 (Version 1)
Quarter: 2017Q3

REPORT INFORMATION
  Report Type: Spontaneous
  Country: FR (occurrence: FR)
  Receive Date: 20170808
  Receipt Date: 20170808
  Transmission Date: 20171127
  Serious: Yes (Other)
  Sender: FDA-Public Use
  Company Number: FR-MERCK KGAA-2024350

PATIENT
  Sex: Female

DRUGS (1)
  1. NOVOTHYROX [Suspect]
     Active Substance: LEVOTHYROXINE SODIUM
     Indication: PRODUCT USED FOR UNKNOWN INDICATION

REACTIONS (22)
  - Stress [Unknown]
  - Dysuria [Unknown]
  - Head discomfort [Unknown]
  - Insomnia [Unknown]
  - Paraesthesia [Unknown]
  - Hyperchlorhydria [Unknown]
  - Nausea [Unknown]
  - Gastrointestinal disorder [Unknown]
  - Pyrexia [Unknown]
  - Visual impairment [Unknown]
  - Constipation [Unknown]
  - Feeding disorder [Unknown]
  - Palpitations [Unknown]
  - Throat tightness [Unknown]
  - Pharyngeal oedema [Unknown]
  - Blood pressure fluctuation [Unknown]
  - Anxiety [Unknown]
  - Joint stiffness [Unknown]
  - Fatigue [Unknown]
  - Vertigo [Unknown]
  - Nervousness [Unknown]
  - Dry mouth [Unknown]
